FAERS Safety Report 10369299 (Version 2)
Quarter: 2014Q3

REPORT INFORMATION
  Report Type: Spontaneous
  Country: JP (occurrence: JP)
  Receive Date: 20140807
  Receipt Date: 20140912
  Transmission Date: 20150326
  Serious: Yes (Other)
  Sender: FDA-Public Use
  Company Number: JP-MYLAN-#E2B0000047335

PATIENT

DRUGS (1)
  1. EPIPEN [Suspect]
     Active Substance: EPINEPHRINE
     Dosage: .15 MG,UNK
     Route: 058
     Dates: start: 20140719, end: 201407

REACTIONS (4)
  - Gait disturbance [Recovered/Resolved]
  - Accidental exposure to product by child [Recovered/Resolved]
  - Injection site pain [Unknown]
  - Restlessness [Recovered/Resolved]

NARRATIVE: CASE EVENT DATE: 201407
